FAERS Safety Report 10396169 (Version 2)
Quarter: 2014Q3

REPORT INFORMATION
  Report Type: Spontaneous
  Country: FR (occurrence: FR)
  Receive Date: 20140820
  Receipt Date: 20140822
  Transmission Date: 20150326
  Serious: Yes (Hospitalization)
  Sender: FDA-Public Use
  Company Number: FR-TEVA-501855ISR

PATIENT
  Age: 86 Year
  Sex: Female

DRUGS (20)
  1. PREVISCAN 20MG [Suspect]
     Active Substance: FLUINDIONE
     Dosage: .75 TABLET DAILY;
     Route: 048
     Dates: start: 20140623, end: 20140626
  2. SPIRIVA [Concomitant]
     Active Substance: TIOTROPIUM BROMIDE MONOHYDRATE
     Indication: CHRONIC OBSTRUCTIVE PULMONARY DISEASE
     Dosage: 1 DOSAGE FORMS DAILY; LONG-TERM TREATMENT
     Route: 055
  3. DAFLON 500MG [Concomitant]
     Indication: HAEMORRHOIDS
     Dosage: 6 DOSAGE FORMS DAILY;
     Route: 048
     Dates: start: 20140624
  4. ECONAZOLE ARROW LP 150MG, PROLONGED-RELEASE VAGINAL CAPSULE [Suspect]
     Active Substance: ECONAZOLE
     Indication: VULVOVAGINAL DISCOMFORT
     Dosage: 1 DOSAGE FORMS DAILY;
     Route: 067
     Dates: start: 20140623, end: 20140624
  5. DIFFU K [Concomitant]
     Active Substance: POTASSIUM CHLORIDE
     Dosage: 1 DOSAGE FORMS DAILY; LONG-TERM TREATMENT
     Route: 048
  6. DAIVOBET [Concomitant]
     Active Substance: BETAMETHASONE DIPROPIONATE\CALCIPOTRIENE
     Indication: PSORIASIS
     Dosage: 3 DOSAGE FORMS DAILY; LONG-TERM TREATMENT
     Route: 003
  7. LANSOPRAZOLE MYLAN 30MG [Concomitant]
     Dosage: 1 DOSAGE FORMS DAILY; LONG-TERM TREATMENT
     Route: 048
  8. ECONAZOLE RATIOPHARM 1 POUR CENT, POWDER FOR CUTANEOUS APPLICATION [Suspect]
     Active Substance: ECONAZOLE
     Indication: VULVOVAGINAL DISCOMFORT
     Dosage: 2 DOSAGE FORMS DAILY;
     Route: 003
     Dates: start: 20140623, end: 20140702
  9. ADENURIC 80MG [Concomitant]
     Dosage: 1 DOSAGE FORMS DAILY; LONG-TERM TREATMENT
     Route: 048
  10. LEVOTHYROX 150 MICROGRAMS [Concomitant]
     Indication: HYPOTHYROIDISM
     Dosage: 1 DOSAGE FORMS DAILY; LONG-TERM TREATMENT
     Route: 048
  11. PREVISCAN 20MG [Suspect]
     Active Substance: FLUINDIONE
     Dosage: .75 TABLET DAILY;
     Route: 048
     Dates: start: 20140605, end: 20140612
  12. PREVISCAN 20MG [Suspect]
     Active Substance: FLUINDIONE
     Dosage: 1 TABLET ON EVEN DAYS AND 0.75 TABLET ON ODD DAYS
     Route: 048
     Dates: start: 20140612, end: 20140622
  13. PARACETAMOL [Concomitant]
     Active Substance: ACETAMINOPHEN
     Dosage: 3 GRAM DAILY; LONG-TERM TREATMENT
     Route: 048
  14. LASILIX SPECIAL 500MG [Concomitant]
     Active Substance: FUROSEMIDE
     Indication: HYPERTENSION
     Dosage: .5 DOSAGE FORMS DAILY; LONG-TERM TREATMENT
     Route: 048
  15. PREVISCAN 20MG [Suspect]
     Active Substance: FLUINDIONE
     Indication: ATRIAL FIBRILLATION
     Dosage: 0.5 TABLET ON EVEN DAYS AND 0.75 TABLET ON ODD DAYS
     Route: 048
     Dates: start: 20140520, end: 20140605
  16. SYMBICORT TURBUHALER 200/6 MICROGRAMS PER DAY, POWDER FOR INHALATION [Concomitant]
     Indication: CHRONIC OBSTRUCTIVE PULMONARY DISEASE
     Dosage: 1 DOSAGE FORMS DAILY; LONG-TERM TREATMENT
     Route: 055
  17. SERESTA 10MG [Concomitant]
     Dosage: 1 DOSAGE FORMS DAILY;
     Route: 048
  18. NAPROXENE SODIQUE 550MG [Suspect]
     Active Substance: NAPROXEN SODIUM
     Indication: PSORIATIC ARTHROPATHY
     Dosage: 1100 MILLIGRAM DAILY;
     Route: 048
     Dates: start: 20140616, end: 20140626
  19. PREVISCAN 20MG [Suspect]
     Active Substance: FLUINDIONE
     Dosage: 0.5 TABLET ON EVEN DAYS AND 0.75 TABLET ON ODD DAYS
     Route: 048
     Dates: start: 20140627
  20. LOSARTAN POTASSIQUE [Concomitant]
     Indication: HYPERTENSION
     Dosage: 100 MILLIGRAM DAILY; LONG-TERM TREATMENT
     Route: 048

REACTIONS (2)
  - Rectal haemorrhage [Recovered/Resolved]
  - International normalised ratio increased [Recovered/Resolved]

NARRATIVE: CASE EVENT DATE: 20140622
